FAERS Safety Report 10485430 (Version 1)
Quarter: 2014Q3

REPORT INFORMATION
  Report Type: Report from Study
  Country: US (occurrence: US)
  Receive Date: 20140930
  Receipt Date: 20140930
  Transmission Date: 20150326
  Serious: No
  Sender: FDA-Public Use
  Company Number: US-ALEXION-A201203125

PATIENT
  Sex: Female

DRUGS (1)
  1. SOLIRIS [Suspect]
     Active Substance: ECULIZUMAB
     Indication: PAROXYSMAL NOCTURNAL HAEMOGLOBINURIA

REACTIONS (9)
  - Anxiety [Unknown]
  - Stress [Unknown]
  - Abscess oral [Unknown]
  - Blood lactate dehydrogenase increased [Unknown]
  - Urinary tract infection [Unknown]
  - Chest pain [Unknown]
  - Insomnia [Unknown]
  - Burning sensation [Unknown]
  - Fatigue [Unknown]
